FAERS Safety Report 18050177 (Version 2)
Quarter: 2020Q4

REPORT INFORMATION
  Report Type: Spontaneous
  Country: US (occurrence: US)
  Receive Date: 20200721
  Receipt Date: 20201006
  Transmission Date: 20210113
  Serious: No
  Sender: FDA-Public Use
  Company Number: US-LEXICON PHARMACEUTICALS, INC-20-1606-00545

PATIENT
  Age: 81 Year
  Sex: Male

DRUGS (3)
  1. XERMELO [Suspect]
     Active Substance: TELOTRISTAT ETHYL
     Dosage: TAKES 1-2 TIMES DAILY
  2. SANDOSTATIN [Concomitant]
     Active Substance: OCTREOTIDE ACETATE
  3. XERMELO [Suspect]
     Active Substance: TELOTRISTAT ETHYL
     Indication: CARCINOID SYNDROME
     Dates: start: 20200611

REACTIONS (2)
  - Food intolerance [Unknown]
  - Intentional product misuse [Not Recovered/Not Resolved]
